FAERS Safety Report 23654229 (Version 1)
Quarter: 2024Q1

REPORT INFORMATION
  Report Type: Spontaneous
  Country: US (occurrence: None)
  Receive Date: 20240319
  Receipt Date: 20240319
  Transmission Date: 20240409
  Serious: Yes (Life-Threatening, Hospitalization)
  Sender: FDA-Public Use
  Company Number: None

PATIENT
  Age: 72 Year
  Sex: Female
  Weight: 72.57 kg

DRUGS (9)
  1. CEFEPIME [Suspect]
     Active Substance: CEFEPIME HYDROCHLORIDE
     Indication: Soft tissue infection
     Dosage: FREQUENCY : DAILY;?
     Route: 042
     Dates: start: 20240210, end: 20240215
  2. CLINDAMYCIN [Concomitant]
     Active Substance: CLINDAMYCIN
  3. CIPROFLOXACIN [Concomitant]
     Active Substance: CIPROFLOXACIN
  4. LYRICA [Concomitant]
     Active Substance: PREGABALIN
  5. FENTANYL TRANSDERMAL SYSTEM [Concomitant]
     Active Substance: FENTANYL
  6. NORTRIPTYLINE [Concomitant]
     Active Substance: NORTRIPTYLINE
  7. ATORVASTATIN [Concomitant]
     Active Substance: ATORVASTATIN
  8. AMLODIPINE [Concomitant]
     Active Substance: AMLODIPINE BESYLATE
  9. METOPROLOL [Concomitant]
     Active Substance: METOPROLOL

REACTIONS (2)
  - Poverty of speech [None]
  - Therapy cessation [None]

NARRATIVE: CASE EVENT DATE: 20240212
